FAERS Safety Report 16181384 (Version 1)
Quarter: 2019Q2

REPORT INFORMATION
  Report Type: Report from Study
  Country: None (occurrence: CA)
  Receive Date: 20190410
  Receipt Date: 20190410
  Transmission Date: 20190711
  Serious: Yes (Other)
  Sender: FDA-Public Use
  Company Number: CA-ABBVIE-18K-028-2478698-00

PATIENT
  Age: 55 Year
  Sex: Female

DRUGS (1)
  1. HUMIRA [Suspect]
     Active Substance: ADALIMUMAB
     Indication: CROHN^S DISEASE
     Route: 058
     Dates: start: 20151119

REACTIONS (3)
  - Diarrhoea [Unknown]
  - Erythema of eyelid [Not Recovered/Not Resolved]
  - Food intolerance [Unknown]

NARRATIVE: CASE EVENT DATE: 20180904
